FAERS Safety Report 13468066 (Version 1)
Quarter: 2017Q2

REPORT INFORMATION
  Report Type: Spontaneous
  Country: CA (occurrence: CA)
  Receive Date: 20170421
  Receipt Date: 20170421
  Transmission Date: 20170830
  Serious: Yes (Other)
  Sender: FDA-Public Use
  Company Number: CA-APOTEX-2017AP010751

PATIENT
  Sex: Male

DRUGS (10)
  1. PARALDEHYDE [Suspect]
     Active Substance: PARALDEHYDE
     Indication: SEIZURE
     Route: 065
  2. APO-LAMOTRIGINE [Suspect]
     Active Substance: LAMOTRIGINE
     Indication: SEIZURE
     Route: 065
  3. APO-CARBAMAZEPINE CR [Suspect]
     Active Substance: CARBAMAZEPINE
     Indication: SEIZURE
     Route: 065
  4. PHENOBARBITAL. [Suspect]
     Active Substance: PHENOBARBITAL
     Indication: SEIZURE
     Route: 065
  5. APO-CLOBAZAM TABLETS [Suspect]
     Active Substance: CLOBAZAM
     Indication: SEIZURE
     Route: 065
  6. MIDAZOLAM [Suspect]
     Active Substance: MIDAZOLAM HYDROCHLORIDE
     Indication: SEIZURE
     Route: 060
  7. APO-TOPIRAMATE [Suspect]
     Active Substance: TOPIRAMATE
     Indication: SEIZURE
     Route: 065
  8. DIAZEPAM. [Suspect]
     Active Substance: DIAZEPAM
     Indication: SEIZURE
     Route: 054
  9. PHENYTOIN. [Suspect]
     Active Substance: PHENYTOIN
     Indication: SEIZURE
     Route: 065
  10. APO-LEVETIRACETAM [Suspect]
     Active Substance: LEVETIRACETAM
     Indication: SEIZURE

REACTIONS (3)
  - Sedation [Unknown]
  - Drug ineffective [Unknown]
  - Seizure [Recovering/Resolving]
